FAERS Safety Report 8966270 (Version 1)
Quarter: 2012Q4

REPORT INFORMATION
  Report Type: 
  Country: CA (occurrence: CA)
  Receive Date: 20121217
  Receipt Date: 20121217
  Transmission Date: 20130627
  Serious: Yes (Hospitalization)
  Sender: FDA-Public Use
  Company Number: CA-SANOFI-AVENTIS-2012SA089975

PATIENT
  Age: 53 Year
  Sex: Male
  Weight: 88.9 kg

DRUGS (9)
  1. CLOPIDOGREL BISULFATE [Suspect]
     Indication: DRUG USE FOR UNKNOWN INDICATION
     Route: 065
     Dates: start: 20081230
  2. ASPIRIN [Suspect]
     Indication: DRUG USE FOR UNKNOWN INDICATION
     Route: 065
     Dates: start: 20081231
  3. BISOPROLOL [Concomitant]
     Dates: start: 20090210
  4. ISOSORBIDE MONONITRATE [Concomitant]
     Dates: start: 20090827
  5. ROSUVASTATIN [Concomitant]
     Dates: start: 20081126
  6. PERINDOPRIL ERBUMINE [Concomitant]
     Dates: start: 20081128
  7. NITRO-SPRAY [Concomitant]
     Dates: start: 20081129
  8. BLINDED THERAPY [Concomitant]
     Route: 048
     Dates: start: 20090116, end: 20101206
  9. BLINDED THERAPY [Concomitant]
     Dates: start: 20101208

REACTIONS (1)
  - Chest pain [Not Recovered/Not Resolved]
